FAERS Safety Report 20583036 (Version 3)
Quarter: 2022Q2

REPORT INFORMATION
  Report Type: Spontaneous
  Country: US (occurrence: US)
  Receive Date: 20220311
  Receipt Date: 20220411
  Transmission Date: 20220721
  Serious: Yes (Other)
  Sender: FDA-Public Use
  Company Number: US-BAYER-2022A031851

PATIENT
  Age: 34 Year
  Sex: Male

DRUGS (5)
  1. KOGENATE FS [Suspect]
     Active Substance: ANTIHEMOPHILIC FACTOR, HUMAN RECOMBINANT
     Dosage: 6750 IU
  2. KOGENATE FS [Suspect]
     Active Substance: ANTIHEMOPHILIC FACTOR, HUMAN RECOMBINANT
     Dosage: UNK, 2 DOUBLE DOSES AND 1 SINGLE DOSE FOR THE LEFT ANKLE AND RIGHT KNEE BLEED TREATMENT
  3. KOGENATE FS [Suspect]
     Active Substance: ANTIHEMOPHILIC FACTOR, HUMAN RECOMBINANT
     Dosage: UNK, DOUBLE DOSE FOR THE BROKEN INDEX FINGER TREATMENT
  4. KOGENATE FS [Suspect]
     Active Substance: ANTIHEMOPHILIC FACTOR, HUMAN RECOMBINANT
     Dosage: 1 DF, FOR THE NOSE INJURY TREATMENT
     Dates: start: 20220316, end: 20220316
  5. KOGENATE FS [Suspect]
     Active Substance: ANTIHEMOPHILIC FACTOR, HUMAN RECOMBINANT
     Dosage: 1 DF, FOR THE BRUISES ON THE BACK AND BUTTOCKS TREATMENT
     Dates: start: 20220318, end: 20220318

REACTIONS (8)
  - Haemarthrosis [None]
  - Haemarthrosis [None]
  - Hand fracture [None]
  - Nasal injury [Recovered/Resolved]
  - Contusion [Recovered/Resolved]
  - Contusion [Recovered/Resolved]
  - Joint swelling [Recovered/Resolved]
  - Peripheral swelling [Recovered/Resolved]

NARRATIVE: CASE EVENT DATE: 20220201
